FAERS Safety Report 9277545 (Version 1)
Quarter: 2013Q2

REPORT INFORMATION
  Report Type: Spontaneous
  Country: US (occurrence: None)
  Receive Date: 20130503
  Receipt Date: 20130503
  Transmission Date: 20140414
  Serious: Yes (Hospitalization)
  Sender: FDA-Public Use
  Company Number: None

PATIENT
  Age: 65 Year
  Sex: Male
  Weight: 113.1 kg

DRUGS (1)
  1. SPIRONOLACTONE [Suspect]
     Route: 048
     Dates: start: 20121107, end: 20130101

REACTIONS (2)
  - Hypersensitivity [None]
  - Atrioventricular block [None]
